FAERS Safety Report 4860777-8 (Version None)
Quarter: 2005Q4

REPORT INFORMATION
  Report Type: 
  Country: None (occurrence: None)
  Receive Date: 20051216
  Receipt Date: 20051130
  Transmission Date: 20060501
  Serious: Yes (Hospitalization)
  Sender: FDA-Public Use
  Company Number: 430033N05FRA

PATIENT
  Age: 31 Year
  Sex: Female

DRUGS (1)
  1. NOVANTRONE [Suspect]
     Indication: MULTIPLE SCLEROSIS
     Dosage: 20 MG, 1 IN 1 CYCLE,  INTRAVENOUS (NOT OTHERWISE SPECIFIED)
     Route: 042
     Dates: start: 20051019, end: 20051019

REACTIONS (4)
  - DEPRESSED LEVEL OF CONSCIOUSNESS [None]
  - NEUTROPENIA [None]
  - PRODUCTIVE COUGH [None]
  - PYREXIA [None]
